FAERS Safety Report 16657358 (Version 2)
Quarter: 2019Q4

REPORT INFORMATION
  Report Type: Spontaneous
  Country: US (occurrence: US)
  Receive Date: 20190801
  Receipt Date: 20191021
  Transmission Date: 20200122
  Serious: No
  Sender: FDA-Public Use
  Company Number: US-SA-2019SA202823

PATIENT
  Age: 31 Year
  Sex: Male

DRUGS (13)
  1. LISINOPRIL. [Concomitant]
     Active Substance: LISINOPRIL
  2. PANTOPRAZOLE SODIUM. [Concomitant]
     Active Substance: PANTOPRAZOLE SODIUM
  3. CITALOPRAM HYDROBROMIDE. [Concomitant]
     Active Substance: CITALOPRAM HYDROBROMIDE
  4. METOPROLOL SUCCINATE. [Concomitant]
     Active Substance: METOPROLOL SUCCINATE
  5. KEVZARA [Suspect]
     Active Substance: SARILUMAB
     Dosage: 200 MG, QOW
     Route: 058
     Dates: start: 20190603, end: 201907
  6. SERTRALINE HCL [Concomitant]
     Active Substance: SERTRALINE HYDROCHLORIDE
  7. DICLOFENAC SODIUM. [Concomitant]
     Active Substance: DICLOFENAC SODIUM
  8. BUPROPION HCL [Concomitant]
     Active Substance: BUPROPION HYDROCHLORIDE
  9. OLANZAPINE. [Concomitant]
     Active Substance: OLANZAPINE
  10. ZOLOFT [Concomitant]
     Active Substance: SERTRALINE HYDROCHLORIDE
  11. CLONAZEPAM. [Concomitant]
     Active Substance: CLONAZEPAM
  12. MIRTAZAPINE. [Concomitant]
     Active Substance: MIRTAZAPINE
  13. METHOTREXATE. [Concomitant]
     Active Substance: METHOTREXATE

REACTIONS (3)
  - Injection site erythema [Not Recovered/Not Resolved]
  - Malaise [Recovered/Resolved]
  - Injection site rash [Not Recovered/Not Resolved]

NARRATIVE: CASE EVENT DATE: 201907
